FAERS Safety Report 6586364-1 (Version None)
Quarter: 2010Q1

REPORT INFORMATION
  Report Type: 
  Country: None (occurrence: None)
  Receive Date: 20100216
  Receipt Date: 20100216
  Transmission Date: 20100710
  Serious: Yes (Other)
  Sender: FDA-Public Use
  Company Number: None

PATIENT
  Age: 55 Year
  Sex: Male
  Weight: 132.7 kg

DRUGS (12)
  1. PAMIDRONATE 30 MG IV POWDER FOR INJECTION TEVA [Suspect]
     Indication: HYPERCALCAEMIA
     Dosage: 60 MG MONTHLY INTRAVENOUS
     Route: 042
     Dates: start: 20080514
  2. PAMIDRONATE 30 MG IV POWDER FOR INJECTION TEVA [Suspect]
     Indication: MULTIPLE MYELOMA
     Dosage: 60 MG MONTHLY INTRAVENOUS
     Route: 042
     Dates: start: 20080514
  3. PAMIDRONATE 30 MG IV POWDER FOR INJECTION TEVA [Suspect]
     Indication: HYPERCALCAEMIA
     Dosage: 60 MG MONTHLY INTRAVENOUS
     Route: 042
     Dates: start: 20090527
  4. PAMIDRONATE 30 MG IV POWDER FOR INJECTION TEVA [Suspect]
     Indication: MULTIPLE MYELOMA
     Dosage: 60 MG MONTHLY INTRAVENOUS
     Route: 042
     Dates: start: 20090527
  5. PAMIDRONATE 30 MG IV POWDER FOR INJECTION TEVA [Suspect]
     Indication: HYPERCALCAEMIA
     Dosage: 60 MG MONTHLY INTRAVENOUS
     Route: 042
     Dates: start: 20091127
  6. PAMIDRONATE 30 MG IV POWDER FOR INJECTION TEVA [Suspect]
     Indication: MULTIPLE MYELOMA
     Dosage: 60 MG MONTHLY INTRAVENOUS
     Route: 042
     Dates: start: 20091127
  7. PAMIDRONATE 60 MG IV POWDER FOR INJECTION BEDFORD LABS [Suspect]
     Indication: HYPERCALCAEMIA
     Dosage: 90 MG MONTHLY INTRAVENOUS
     Route: 042
     Dates: start: 20090714
  8. PAMIDRONATE 60 MG IV POWDER FOR INJECTION BEDFORD LABS [Suspect]
     Indication: MULTIPLE MYELOMA
     Dosage: 90 MG MONTHLY INTRAVENOUS
     Route: 042
     Dates: start: 20090714
  9. PAMIDRONATE 60 MG IV POWDER FOR INJECTION BEDFORD LABS [Suspect]
     Indication: HYPERCALCAEMIA
     Dosage: 90 MG MONTHLY INTRAVENOUS
     Route: 042
     Dates: start: 20090922
  10. PAMIDRONATE 60 MG IV POWDER FOR INJECTION BEDFORD LABS [Suspect]
     Indication: MULTIPLE MYELOMA
     Dosage: 90 MG MONTHLY INTRAVENOUS
     Route: 042
     Dates: start: 20090922
  11. PAMIDRONATE 60 MG IV POWDER FOR INJECTION BEDFORD LABS [Suspect]
     Indication: HYPERCALCAEMIA
     Dosage: 90 MG MONTHLY INTRAVENOUS
     Route: 042
     Dates: start: 20091023
  12. PAMIDRONATE 60 MG IV POWDER FOR INJECTION BEDFORD LABS [Suspect]
     Indication: MULTIPLE MYELOMA
     Dosage: 90 MG MONTHLY INTRAVENOUS
     Route: 042
     Dates: start: 20091023

REACTIONS (2)
  - EXOSTOSIS [None]
  - OSTEONECROSIS [None]
